FAERS Safety Report 7601517-9 (Version None)
Quarter: 2011Q3

REPORT INFORMATION
  Report Type: 
  Country: None (occurrence: None)
  Receive Date: 20110711
  Receipt Date: 20110627
  Transmission Date: 20111222
  Serious: Yes (Other)
  Sender: FDA-Public Use
  Company Number: PHHY2011JP46355

PATIENT
  Sex: Male

DRUGS (6)
  1. MONTELUKAST SODIUM [Concomitant]
     Indication: ASTHMA
     Dosage: 10 MG DAILY
     Route: 048
     Dates: start: 20110506
  2. SYMBICORT [Concomitant]
     Indication: ASTHMA
     Dosage: 4 DF, UNK
     Dates: start: 20110506
  3. MUCOTRON [Concomitant]
     Indication: ASTHMA
     Dosage: 1500 MG, UNK
     Route: 048
     Dates: start: 20110506
  4. ATELEC [Concomitant]
     Indication: HYPERTENSION
     Dosage: 10 MG DAILY
     Dates: start: 20110519
  5. DIOVAN HCT [Suspect]
     Indication: HYPERTENSION
     Dosage: 1 DF DAILY
     Route: 048
     Dates: start: 20110506, end: 20110519
  6. TULOBUTEROL [Concomitant]
     Indication: ASTHMA
     Dosage: 1 DF, UNK
     Route: 062
     Dates: start: 20110506

REACTIONS (18)
  - DIABETES MELLITUS [None]
  - PRODUCTIVE COUGH [None]
  - BLOOD SODIUM DECREASED [None]
  - WHITE BLOOD CELL COUNT INCREASED [None]
  - RHINORRHOEA [None]
  - COUGH [None]
  - HEART RATE INCREASED [None]
  - PROTEIN URINE PRESENT [None]
  - HYPONATRAEMIA [None]
  - BLOOD PRESSURE FLUCTUATION [None]
  - HYPOXIA [None]
  - BLOOD GLUCOSE INCREASED [None]
  - OROPHARYNGEAL PAIN [None]
  - BLOOD CHLORIDE DECREASED [None]
  - INFECTION [None]
  - GLYCOSYLATED HAEMOGLOBIN INCREASED [None]
  - ASTHMA [None]
  - DYSPNOEA [None]
